FAERS Safety Report 6064210-2 (Version None)
Quarter: 2009Q1

REPORT INFORMATION
  Report Type: 
  Country: None (occurrence: None)
  Receive Date: 20090204
  Receipt Date: 20090130
  Transmission Date: 20090719
  Serious: Yes (Death, Hospitalization, Other)
  Sender: FDA-Public Use
  Company Number: US-CELGENEUS-163-20785-09010328

PATIENT
  Sex: Female

DRUGS (1)
  1. THALOMID [Suspect]
     Indication: SARCOIDOSIS
     Route: 048
     Dates: start: 20070322

REACTIONS (2)
  - DEATH [None]
  - SYNCOPE [None]
